FAERS Safety Report 15392946 (Version 6)
Quarter: 2018Q4

REPORT INFORMATION
  Report Type: Spontaneous
  Country: PT (occurrence: PT)
  Receive Date: 20180917
  Receipt Date: 20181215
  Transmission Date: 20190204
  Serious: Yes (Other)
  Sender: FDA-Public Use
  Company Number: PT-009507513-1809PRT002665

PATIENT
  Age: 65 Year
  Sex: Female

DRUGS (6)
  1. AMOXICILLIN (+) CLAVULANATE POTASSIUM [Concomitant]
     Active Substance: AMOXICILLIN\CLAVULANATE POTASSIUM
     Indication: PNEUMONIA
  2. AZITHROMYCIN ANHYDROUS. [Concomitant]
     Active Substance: AZITHROMYCIN ANHYDROUS
     Indication: PNEUMONIA
  3. LISINOPRIL. [Suspect]
     Active Substance: LISINOPRIL
     Indication: HYPERTENSION
     Route: 048
  4. INDAPAMIDE (+) PERINDOPRIL [Concomitant]
     Active Substance: INDAPAMIDE\PERINDOPRIL
  5. ALENDRONATE SODIUM (+) CHOLECALCIFEROL [Concomitant]
     Active Substance: ALENDRONATE SODIUM\CHOLECALCIFEROL
  6. CORTICOSTEROIDS (UNSPECIFIED) [Concomitant]
     Active Substance: UNSPECIFIED INGREDIENT

REACTIONS (1)
  - Eosinophilic pneumonia [Recovered/Resolved]
